FAERS Safety Report 5833809-8 (Version None)
Quarter: 2008Q3

REPORT INFORMATION
  Report Type: 
  Country: None (occurrence: None)
  Receive Date: 20080804
  Receipt Date: 20080804
  Transmission Date: 20090109
  Serious: Yes (Hospitalization)
  Sender: FDA-Public Use
  Company Number: None

PATIENT
  Sex: Female
  Weight: 63.9572 kg

DRUGS (1)
  1. MIRENA [Suspect]
     Indication: CONTRACEPTION
     Dates: start: 20040701, end: 20080730

REACTIONS (5)
  - ADVERSE DRUG REACTION [None]
  - IUD MIGRATION [None]
  - MENORRHAGIA [None]
  - PAIN [None]
  - UTERINE RUPTURE [None]
